FAERS Safety Report 14711858 (Version 1)
Quarter: 2018Q2

REPORT INFORMATION
  Report Type: Spontaneous
  Country: DE (occurrence: DE)
  Receive Date: 20180403
  Receipt Date: 20180403
  Transmission Date: 20180711
  Serious: Yes (Hospitalization, Other)
  Sender: FDA-Public Use
  Company Number: DE-MYLANLABS-2017M1080050

PATIENT
  Age: 55 Year
  Sex: Female

DRUGS (6)
  1. PREDNISOLONE. [Suspect]
     Active Substance: PREDNISOLONE
     Indication: CHRONIC HEPATITIS B
     Dosage: 5 MG, DAILY
     Dates: start: 20141201
  2. TACROLIMUS. [Suspect]
     Active Substance: TACROLIMUS
     Indication: CHRONIC HEPATITIS B
     Dosage: 3.5 MG, DAILY
     Dates: start: 201412
  3. TACROLIMUS. [Suspect]
     Active Substance: TACROLIMUS
     Indication: RENAL AND PANCREAS TRANSPLANT
     Dosage: 7 MG, QD
     Dates: start: 20141201
  4. TACROLIMUS. [Suspect]
     Active Substance: TACROLIMUS
     Dosage: 0.5 MG, QD
  5. CLINDAMYCIN                        /00166004/ [Concomitant]
     Indication: ANTIBIOTIC THERAPY
     Dosage: 1800 MG, QD
  6. MOXIFLOXACIN. [Concomitant]
     Active Substance: MOXIFLOXACIN
     Indication: ANTIBIOTIC THERAPY
     Dosage: 400 MG, QD

REACTIONS (10)
  - Product use in unapproved indication [Unknown]
  - Dermatophytosis [Recovered/Resolved]
  - Off label use [Unknown]
  - Fungal infection [Recovered/Resolved]
  - Bursitis [Recovered/Resolved]
  - Chronic hepatitis B [Unknown]
  - Arthralgia [Recovered/Resolved]
  - Bursitis infective [Recovered/Resolved]
  - Cytomegalovirus infection [Unknown]
  - Joint abscess [Recovered/Resolved]
